FAERS Safety Report 8029950-4 (Version None)
Quarter: 2011Q4

REPORT INFORMATION
  Report Type: 
  Country: None (occurrence: None)
  Receive Date: 20111130
  Receipt Date: 20110624
  Transmission Date: 20120403
  Serious: Yes (Other)
  Sender: FDA-Public Use
  Company Number: US201106002704

PATIENT
  Age: 49 Year
  Sex: Male
  Weight: 137.9 kg

DRUGS (10)
  1. LOVAZA [Concomitant]
  2. BYETTA [Suspect]
     Indication: TYPE 2 DIABETES MELLITUS
     Dosage: 5 UG, BID, SUBCUTANEOUS ; 10 UG, BID, SUBCUTANEOUS ; 5 UG, BID, SUBCUTANEOUS
     Route: 058
     Dates: start: 20090701, end: 20100810
  3. BYETTA [Suspect]
     Indication: TYPE 2 DIABETES MELLITUS
     Dosage: 5 UG, BID, SUBCUTANEOUS ; 10 UG, BID, SUBCUTANEOUS ; 5 UG, BID, SUBCUTANEOUS
     Route: 058
     Dates: start: 20100810, end: 20110607
  4. BYETTA [Suspect]
     Indication: TYPE 2 DIABETES MELLITUS
     Dosage: 5 UG, BID, SUBCUTANEOUS ; 10 UG, BID, SUBCUTANEOUS ; 5 UG, BID, SUBCUTANEOUS
     Route: 058
     Dates: start: 20090601, end: 20090701
  5. METFORMIN HCL [Concomitant]
  6. GLIMEPIRIDE [Concomitant]
  7. CRESTOR [Concomitant]
  8. LISINOPRIL [Concomitant]
  9. VITAMIN D [Concomitant]
  10. ASPIRIN [Concomitant]

REACTIONS (3)
  - WEIGHT DECREASED [None]
  - WEIGHT INCREASED [None]
  - PANCREATITIS [None]
